FAERS Safety Report 11428419 (Version 1)
Quarter: 2015Q3

REPORT INFORMATION
  Report Type: Spontaneous
  Country: US (occurrence: None)
  Receive Date: 20150827
  Receipt Date: 20150827
  Transmission Date: 20151125
  Serious: Yes (Hospitalization)
  Sender: FDA-Public Use
  Company Number: None

PATIENT
  Age: 63 Year
  Sex: Male
  Weight: 133.81 kg

DRUGS (3)
  1. SYNTHROID [Concomitant]
     Active Substance: LEVOTHYROXINE SODIUM
  2. NEURONTIN [Suspect]
     Active Substance: GABAPENTIN
     Indication: SLEEP APNOEA SYNDROME
     Dosage: 2 PILLS
     Route: 048
     Dates: start: 20150818, end: 20150818
  3. CPAP MACHINE [Concomitant]

REACTIONS (6)
  - Hallucination [None]
  - Feeling abnormal [None]
  - Thinking abnormal [None]
  - Diplopia [None]
  - Dizziness [None]
  - Vision blurred [None]

NARRATIVE: CASE EVENT DATE: 20150818
